FAERS Safety Report 16432880 (Version 1)
Quarter: 2019Q2

REPORT INFORMATION
  Report Type: Spontaneous
  Country: US (occurrence: US)
  Receive Date: 20190614
  Receipt Date: 20190614
  Transmission Date: 20190711
  Serious: No
  Sender: FDA-Public Use
  Company Number: US-JNJFOC-20170127568

PATIENT
  Sex: Female
  Weight: 60.33 kg

DRUGS (1)
  1. ULTRACET [Suspect]
     Active Substance: ACETAMINOPHEN\TRAMADOL HYDROCHLORIDE
     Indication: FIBROMYALGIA
     Route: 065

REACTIONS (2)
  - Headache [Unknown]
  - Decreased appetite [Unknown]
